FAERS Safety Report 11972918 (Version 1)
Quarter: 2016Q1

REPORT INFORMATION
  Report Type: Spontaneous
  Country: US (occurrence: US)
  Receive Date: 20160128
  Receipt Date: 20160128
  Transmission Date: 20160526
  Serious: Yes (Hospitalization, Other)
  Sender: FDA-Public Use
  Company Number: US-PFIZER INC-2016046216

PATIENT
  Age: 27 Year
  Sex: Male
  Weight: 93 kg

DRUGS (2)
  1. RAPAMUNE [Suspect]
     Active Substance: SIROLIMUS
     Indication: PROPHYLAXIS AGAINST TRANSPLANT REJECTION
     Dosage: 2 MG, 2X/DAY (2MG ONE TABLET TWICE DAILY)
     Dates: start: 20151008
  2. FUROSEMIDE. [Concomitant]
     Active Substance: FUROSEMIDE
     Indication: CARDIAC DISORDER
     Dosage: 40 MG, 2X/DAY
     Route: 048
     Dates: start: 20151024

REACTIONS (2)
  - Product use issue [Unknown]
  - Cardiac failure [Recovering/Resolving]
